FAERS Safety Report 19573251 (Version 1)
Quarter: 2021Q3

REPORT INFORMATION
  Report Type: Spontaneous
  Country: DE (occurrence: DE)
  Receive Date: 20210717
  Receipt Date: 20210717
  Transmission Date: 20211014
  Serious: Yes (Hospitalization)
  Sender: FDA-Public Use
  Company Number: DE-AUROBINDO-AUR-APL-2021-029870

PATIENT
  Age: 23 Year
  Sex: Male

DRUGS (1)
  1. RISPERIDONE. [Suspect]
     Active Substance: RISPERIDONE
     Indication: PRODUCT USED FOR UNKNOWN INDICATION
     Dosage: 3 MILLIGRAM, ONCE A DAY
     Route: 065
     Dates: start: 20191029, end: 20191217

REACTIONS (3)
  - Chills [Recovered/Resolved]
  - Bradykinesia [Recovered/Resolved]
  - Propulsive gait [Recovered/Resolved]

NARRATIVE: CASE EVENT DATE: 20191205
